FAERS Safety Report 12856993 (Version 1)
Quarter: 2016Q4

REPORT INFORMATION
  Report Type: Spontaneous
  Country: US (occurrence: US)
  Receive Date: 20161018
  Receipt Date: 20161018
  Transmission Date: 20170207
  Serious: Yes (Hospitalization, Other)
  Sender: FDA-Public Use
  Company Number: US-BAYER-2016-195144

PATIENT
  Sex: Female

DRUGS (2)
  1. ALEVE [Suspect]
     Active Substance: NAPROXEN SODIUM
     Indication: HEADACHE
     Dosage: 2 DF, ONCE
     Dates: start: 2012, end: 2012
  2. ALEVE [Suspect]
     Active Substance: NAPROXEN SODIUM
     Indication: HEADACHE
     Dosage: UNK

REACTIONS (2)
  - Drug hypersensitivity [Unknown]
  - Dyspnoea [None]

NARRATIVE: CASE EVENT DATE: 2012
